FAERS Safety Report 14735391 (Version 2)
Quarter: 2018Q2

REPORT INFORMATION
  Report Type: Spontaneous
  Country: BR (occurrence: BR)
  Receive Date: 20180409
  Receipt Date: 20180511
  Transmission Date: 20180711
  Serious: Yes (Death, Other)
  Sender: FDA-Public Use
  Company Number: BR-PFIZER INC-2018141158

PATIENT
  Age: 67 Year

DRUGS (2)
  1. PREDNISONE. [Concomitant]
     Active Substance: PREDNISONE
     Dosage: 10 MG, DAILY
  2. XELJANZ [Suspect]
     Active Substance: TOFACITINIB CITRATE
     Indication: RHEUMATOID ARTHRITIS
     Dosage: 5 MG, EVERY 12 HOURS
     Dates: start: 201801, end: 201802

REACTIONS (4)
  - Death [Fatal]
  - Diabetes mellitus inadequate control [Unknown]
  - Sepsis [Unknown]
  - Urinary tract infection [Unknown]
